FAERS Safety Report 14418478 (Version 1)
Quarter: 2018Q1

REPORT INFORMATION
  Report Type: Spontaneous
  Country: US (occurrence: US)
  Receive Date: 20180119
  Receipt Date: 20180119
  Transmission Date: 20180509
  Serious: Yes (Other)
  Sender: FDA-Public Use
  Company Number: None

PATIENT
  Age: 31 Year
  Sex: Male
  Weight: 72 kg

DRUGS (4)
  1. MEDTRONIC 670G INSULIN PUMP [Concomitant]
  2. OSELTAMIVIR PHOSPHATE. [Suspect]
     Active Substance: OSELTAMIVIR PHOSPHATE
     Indication: INFLUENZA
     Dosage: ?          QUANTITY:10 CAPSULE(S);?
     Route: 048
     Dates: start: 20180118, end: 20180118
  3. NOVOLOG [Concomitant]
     Active Substance: INSULIN ASPART
  4. MOTRIN [Concomitant]
     Active Substance: IBUPROFEN

REACTIONS (8)
  - Pyrexia [None]
  - Dizziness [None]
  - Chills [None]
  - Hyperhidrosis [None]
  - Dyspnoea [None]
  - Tremor [None]
  - Chest discomfort [None]
  - Vomiting [None]

NARRATIVE: CASE EVENT DATE: 20180118
